FAERS Safety Report 9644718 (Version 1)
Quarter: 2013Q4

REPORT INFORMATION
  Report Type: Spontaneous
  Country: US (occurrence: None)
  Receive Date: 20131023
  Receipt Date: 20131023
  Transmission Date: 20140711
  Serious: Yes (Disabling)
  Sender: FDA-Public Use
  Company Number: None

PATIENT
  Age: 22 Year
  Sex: Female
  Weight: 56.7 kg

DRUGS (5)
  1. ZICAM [Suspect]
     Indication: NASOPHARYNGITIS
     Dates: start: 20061001, end: 20091001
  2. USANA VITAMINS [Concomitant]
  3. ^REST AND SLEEP^ SUPPLEMENT [Concomitant]
  4. MELATONIN [Concomitant]
  5. BENADRYL [Concomitant]

REACTIONS (1)
  - Hyposmia [None]
